FAERS Safety Report 26174525 (Version 1)
Quarter: 2025Q4

REPORT INFORMATION
  Report Type: Spontaneous
  Country: US (occurrence: None)
  Receive Date: 20251217
  Receipt Date: 20251217
  Transmission Date: 20260118
  Serious: Yes (Hospitalization)
  Sender: FDA-CTU
  Company Number: None

PATIENT
  Age: 63 Year
  Sex: Female

DRUGS (1)
  1. RYBREVANT [Suspect]
     Active Substance: AMIVANTAMAB-VMJW
     Indication: Non-small cell lung cancer
     Dosage: OTHER FREQUENCY : ONCE;
     Route: 041
     Dates: start: 20251215, end: 20251215

REACTIONS (2)
  - Infusion related reaction [None]
  - Anaphylactic shock [None]

NARRATIVE: CASE EVENT DATE: 20251215
